FAERS Safety Report 25518885 (Version 2)
Quarter: 2025Q4

REPORT INFORMATION
  Report Type: Report from Study
  Country: US (occurrence: US)
  Receive Date: 20250704
  Receipt Date: 20251014
  Transmission Date: 20260117
  Serious: Yes (Other)
  Sender: TAKEDA
  Company Number: US-TAKEDA-2025TUS060222

PATIENT
  Age: 24 Year
  Sex: Male

DRUGS (1)
  1. RECOMBINATE [Suspect]
     Active Substance: ANTIHEMOPHILIC FACTOR, HUMAN RECOMBINANT
     Indication: Product used for unknown indication
     Dosage: 1750 INTERNATIONAL UNIT

REACTIONS (2)
  - Syncope [Unknown]
  - Cellulitis [Unknown]

NARRATIVE: CASE EVENT DATE: 20250628
